FAERS Safety Report 14161965 (Version 1)
Quarter: 2017Q4

REPORT INFORMATION
  Report Type: Spontaneous
  Country: US (occurrence: US)
  Receive Date: 20171106
  Receipt Date: 20171106
  Transmission Date: 20180321
  Serious: No
  Sender: FDA-Public Use
  Company Number: US-DRREDDYS-USA/USA/17/0087094

PATIENT
  Age: 78 Year
  Sex: Male
  Weight: 72.5 kg

DRUGS (1)
  1. NATEGLINIDE TABLETS [Suspect]
     Active Substance: NATEGLINIDE
     Indication: DIABETES MELLITUS
     Dosage: ONE TABLET IN THE MORNING, TWO TABLETS IN THE EVENING
     Route: 048
     Dates: start: 201701

REACTIONS (2)
  - Dysgeusia [Not Recovered/Not Resolved]
  - Product quality issue [Unknown]

NARRATIVE: CASE EVENT DATE: 201701
